FAERS Safety Report 5871731-1 (Version None)
Quarter: 2008Q3

REPORT INFORMATION
  Report Type: 
  Country: None (occurrence: None)
  Receive Date: 20080904
  Receipt Date: 20080904
  Transmission Date: 20090109
  Serious: Yes (Other)
  Sender: FDA-Public Use
  Company Number: None

PATIENT
  Sex: Female
  Weight: 51.9 kg

DRUGS (1)
  1. REMERON [Suspect]
     Indication: ANXIETY
     Dates: start: 20070801, end: 20080701

REACTIONS (3)
  - AMENORRHOEA [None]
  - HYPOPITUITARISM [None]
  - WEIGHT INCREASED [None]
